FAERS Safety Report 9877231 (Version 5)
Quarter: 2014Q2

REPORT INFORMATION
  Report Type: Report from Study
  Country: ES (occurrence: ES)
  Receive Date: 20140206
  Receipt Date: 20140417
  Transmission Date: 20141212
  Serious: Yes (Disabling)
  Sender: FDA-Public Use
  Company Number: ES-SANOFI-AVENTIS-2013SA065913

PATIENT
  Age: 70 Year
  Sex: Male

DRUGS (6)
  1. DRONEDARONE [Suspect]
     Indication: ATRIAL FIBRILLATION
     Route: 048
     Dates: start: 20130619, end: 20130627
  2. SINTROM [Concomitant]
  3. OLMESARTAN MEDOXOMIL [Concomitant]
  4. ZYLORIC [Concomitant]
  5. SIMVASTATIN [Concomitant]
  6. OMNIC [Concomitant]

REACTIONS (1)
  - Gait disturbance [Recovered/Resolved]
